FAERS Safety Report 8056575-7 (Version None)
Quarter: 2012Q1

REPORT INFORMATION
  Report Type: 
  Country: None (occurrence: None)
  Receive Date: 20120119
  Receipt Date: 20110804
  Transmission Date: 20120608
  Serious: Yes (Hospitalization)
  Sender: FDA-Public Use
  Company Number: PHHY2011JP71944

PATIENT
  Age: 38 Year
  Sex: Male

DRUGS (3)
  1. PYRAZINAMIDE [Suspect]
     Indication: TUBERCULOSIS
  2. RIFAMPICIN [Suspect]
     Indication: TUBERCULOSIS
  3. ISONIAZID [Suspect]
     Indication: TUBERCULOSIS

REACTIONS (2)
  - HEPATITIS [None]
  - ACUTE HEPATIC FAILURE [None]
